FAERS Safety Report 8251180-1 (Version None)
Quarter: 2012Q2

REPORT INFORMATION
  Report Type: 
  Country: None (occurrence: None)
  Receive Date: 20120402
  Receipt Date: 20120322
  Transmission Date: 20120825
  Serious: Yes (Hospitalization)
  Sender: FDA-Public Use
  Company Number: CG-MERCK-1203USA03432

PATIENT
  Age: 36 Year
  Sex: Female
  Weight: 58 kg

DRUGS (1)
  1. STROMECTOL [Suspect]
     Route: 048
     Dates: start: 20111222

REACTIONS (11)
  - DEPRESSED LEVEL OF CONSCIOUSNESS [None]
  - COMA SCALE ABNORMAL [None]
  - CONJUNCTIVAL HAEMORRHAGE [None]
  - LOSS OF CONSCIOUSNESS [None]
  - BODY TEMPERATURE INCREASED [None]
  - RESPIRATION ABNORMAL [None]
  - HEADACHE [None]
  - BLOOD PRESSURE ABNORMAL [None]
  - ENCEPHALOPATHY [None]
  - MYALGIA [None]
  - HEART RATE ABNORMAL [None]
